FAERS Safety Report 26139868 (Version 1)
Quarter: 2025Q4

REPORT INFORMATION
  Report Type: Spontaneous
  Country: US (occurrence: US)
  Receive Date: 20251210
  Receipt Date: 20251210
  Transmission Date: 20260118
  Serious: Yes (Other)
  Sender: BAYER HEALTHCARE PHARMACEUTICALS INC.
  Company Number: US-BAYER-2025A160882

PATIENT
  Sex: Male

DRUGS (2)
  1. JIVI [Suspect]
     Active Substance: DAMOCTOCOG ALFA PEGOL
     Dosage: JIVI 2027 UNITS INFUSE~2000 UNITS
     Route: 042
  2. JIVI [Suspect]
     Active Substance: DAMOCTOCOG ALFA PEGOL
     Dosage: 1 DF
     Route: 042
     Dates: start: 2025, end: 2025

REACTIONS (2)
  - Ankle operation [Unknown]
  - Arthropathy [None]

NARRATIVE: CASE EVENT DATE: 20251001
